FAERS Safety Report 5696472-5 (Version None)
Quarter: 2008Q2

REPORT INFORMATION
  Report Type: 
  Country: None (occurrence: None)
  Receive Date: 20080408
  Receipt Date: 20080401
  Transmission Date: 20081010
  Serious: Yes (Hospitalization)
  Sender: FDA-Public Use
  Company Number: US-BOEHRINGER INGELHEIM GMBH, GERMANY-2008-BP-04992BP

PATIENT
  Sex: Female

DRUGS (1)
  1. VIRAMUNE [Suspect]
     Indication: HIV INFECTION

REACTIONS (4)
  - ABDOMINAL PAIN [None]
  - CHROMATURIA [None]
  - JAUNDICE [None]
  - PYREXIA [None]
